FAERS Safety Report 7457203-1 (Version None)
Quarter: 2011Q2

REPORT INFORMATION
  Report Type: 
  Country: None (occurrence: None)
  Receive Date: 20110504
  Receipt Date: 20110429
  Transmission Date: 20111010
  Serious: No
  Sender: FDA-Public Use
  Company Number: US-PFIZER INC-2011093564

PATIENT
  Sex: Male
  Weight: 68 kg

DRUGS (4)
  1. LIPITOR [Suspect]
     Indication: BLOOD CHOLESTEROL
     Dosage: UNK
     Dates: start: 20100301, end: 20110301
  2. NIASPAN [Suspect]
     Indication: BLOOD CHOLESTEROL
     Dosage: 1000 MG, UNK
     Dates: start: 20080101, end: 20100301
  3. CLOPIDOGREL [Concomitant]
  4. LISINOPRIL [Concomitant]

REACTIONS (1)
  - MUSCLE SPASMS [None]
